FAERS Safety Report 5702566-8 (Version None)
Quarter: 2008Q2

REPORT INFORMATION
  Report Type: 
  Country: None (occurrence: None)
  Receive Date: 20080408
  Receipt Date: 20080401
  Transmission Date: 20081010
  Serious: Yes (Other)
  Sender: FDA-Public Use
  Company Number: 2008007974

PATIENT
  Sex: Male

DRUGS (1)
  1. SUDACARE SHOWER SOOTHERS (NO ACTIVE INGREDIENT) [Suspect]

REACTIONS (1)
  - UNEVALUABLE EVENT [None]
